FAERS Safety Report 10738218 (Version 5)
Quarter: 2015Q1

REPORT INFORMATION
  Report Type: Report from Study
  Country: US (occurrence: US)
  Receive Date: 20150126
  Receipt Date: 20150225
  Transmission Date: 20150721
  Serious: Yes (Hospitalization)
  Sender: FDA-Public Use
  Company Number: US-JNJFOC-20150113549

PATIENT
  Age: 68 Year
  Sex: Male
  Weight: 90.49 kg

DRUGS (22)
  1. ALLOPURINOL. [Concomitant]
     Active Substance: ALLOPURINOL
     Route: 048
  2. CARDURA [Concomitant]
     Active Substance: DOXAZOSIN MESYLATE
     Dates: end: 201501
  3. COUMADIN [Concomitant]
     Active Substance: WARFARIN SODIUM
     Dates: end: 20150107
  4. OMEPRAZOLE. [Concomitant]
     Active Substance: OMEPRAZOLE
  5. FERROUS SULFATE [Concomitant]
     Active Substance: FERROUS SULFATE\FERROUS SULFATE, DRIED
  6. CARDIZEM [Concomitant]
     Active Substance: DILTIAZEM HYDROCHLORIDE
  7. PRAVASTATIN [Concomitant]
     Active Substance: PRAVASTATIN\PRAVASTATIN SODIUM
  8. AMBIEN [Concomitant]
     Active Substance: ZOLPIDEM TARTRATE
  9. PLAVIX [Concomitant]
     Active Substance: CLOPIDOGREL BISULFATE
  10. METFORMIN [Concomitant]
     Active Substance: METFORMIN HYDROCHLORIDE
  11. PEPCID [Concomitant]
     Active Substance: FAMOTIDINE
  12. LORAZEPAM. [Concomitant]
     Active Substance: LORAZEPAM
  13. LISINOPRIL HCTZ [Concomitant]
     Active Substance: HYDROCHLOROTHIAZIDE\LISINOPRIL
  14. RESTORIL [Concomitant]
     Active Substance: TEMAZEPAM
  15. ONDANSETRON [Concomitant]
     Active Substance: ONDANSETRON
  16. CARDURA [Concomitant]
     Active Substance: DOXAZOSIN MESYLATE
     Dates: start: 201501
  17. TEMAZEPAM. [Concomitant]
     Active Substance: TEMAZEPAM
  18. COUMADIN [Concomitant]
     Active Substance: WARFARIN SODIUM
     Dates: start: 20150109
  19. IMBRUVICA [Suspect]
     Active Substance: IBRUTINIB
     Indication: CHRONIC LYMPHOCYTIC LEUKAEMIA
     Route: 048
     Dates: start: 20141024, end: 20150122
  20. GLYBURIDE. [Concomitant]
     Active Substance: GLYBURIDE
  21. MULTIVITAMINS [Concomitant]
     Active Substance: VITAMINS
  22. TRADJENTA [Concomitant]
     Active Substance: LINAGLIPTIN

REACTIONS (11)
  - White blood cell count increased [Not Recovered/Not Resolved]
  - Urinary incontinence [Unknown]
  - Hydrocephalus [Unknown]
  - Asterixis [Unknown]
  - Abdominal pain [Not Recovered/Not Resolved]
  - Anaemia [Unknown]
  - Asthenia [Recovered/Resolved]
  - Glucose urine [Unknown]
  - Metabolic encephalopathy [Unknown]
  - Cerebral disorder [Recovering/Resolving]
  - Mood altered [Not Recovered/Not Resolved]

NARRATIVE: CASE EVENT DATE: 2014
